FAERS Safety Report 13376320 (Version 1)
Quarter: 2017Q1

REPORT INFORMATION
  Report Type: Spontaneous
  Country: DE (occurrence: DE)
  Receive Date: 20170328
  Receipt Date: 20170328
  Transmission Date: 20170429
  Serious: Yes (Other)
  Sender: FDA-Public Use
  Company Number: DE-ASTRAZENECA-2017SE29950

PATIENT
  Age: 79 Year
  Sex: Male
  Weight: 77 kg

DRUGS (3)
  1. ENBREL [Suspect]
     Active Substance: ETANERCEPT
     Route: 058
     Dates: start: 20170127
  2. CANDESARTAN [Suspect]
     Active Substance: CANDESARTAN
     Indication: HYPERTENSION
     Route: 048
     Dates: start: 20170110, end: 20170302
  3. CANDESARTAN [Suspect]
     Active Substance: CANDESARTAN
     Indication: HYPERTENSION
     Route: 048

REACTIONS (1)
  - Hepatic failure [Recovered/Resolved]

NARRATIVE: CASE EVENT DATE: 20170220
